FAERS Safety Report 6400309-6 (Version None)
Quarter: 2009Q4

REPORT INFORMATION
  Report Type: 
  Country: None (occurrence: None)
  Receive Date: 20091014
  Receipt Date: 20090930
  Transmission Date: 20100525
  Serious: Yes (Other)
  Sender: FDA-Public Use
  Company Number: CHNY2009JP03508

PATIENT

DRUGS (1)
  1. VOLTAREN [Suspect]
     Dosage: 400 G PER MONTH
     Route: 061
     Dates: start: 20020101, end: 20070101

REACTIONS (2)
  - INTENTIONAL DRUG MISUSE [None]
  - UPPER GASTROINTESTINAL HAEMORRHAGE [None]
